FAERS Safety Report 24763464 (Version 1)
Quarter: 2024Q4

REPORT INFORMATION
  Report Type: Spontaneous
  Country: DK (occurrence: DK)
  Receive Date: 20241222
  Receipt Date: 20241222
  Transmission Date: 20250115
  Serious: Yes (Other)
  Sender: STRIDES
  Company Number: DK-STRIDES ARCOLAB LIMITED-2024SP016846

PATIENT
  Age: 66 Year
  Sex: Male

DRUGS (1)
  1. METOCLOPRAMIDE [Suspect]
     Active Substance: METOCLOPRAMIDE
     Indication: Vomiting
     Dosage: UNK
     Route: 065

REACTIONS (3)
  - Muscle twitching [Unknown]
  - Dyskinesia [Unknown]
  - Tongue movement disturbance [Unknown]
